FAERS Safety Report 18129677 (Version 1)
Quarter: 2020Q3

REPORT INFORMATION
  Report Type: Spontaneous
  Country: US (occurrence: US)
  Receive Date: 20200810
  Receipt Date: 20200810
  Transmission Date: 20201103
  Serious: No
  Sender: FDA-Public Use
  Company Number: US-PERRIGO-19US010798

PATIENT
  Age: 47 Year
  Sex: Female
  Weight: 79.37 kg

DRUGS (7)
  1. TAYTULLA [Concomitant]
     Active Substance: ETHINYL ESTRADIOL\NORETHINDRONE ACETATE
     Indication: MENSTRUAL DISORDER
     Dosage: UNK
     Route: 065
     Dates: start: 2019
  2. LORATADINE. [Suspect]
     Active Substance: LORATADINE
     Indication: THROAT IRRITATION
     Dosage: 10 MG, TWICE IN 9 HOURS
     Route: 048
     Dates: start: 20190902, end: 20190903
  3. LORATADINE. [Suspect]
     Active Substance: LORATADINE
     Indication: DERMATITIS CONTACT
  4. AMBIEN [Concomitant]
     Active Substance: ZOLPIDEM TARTRATE
     Indication: INSOMNIA
     Dosage: 5 MG, PRN
     Route: 065
     Dates: start: 2017
  5. LORATADINE. [Suspect]
     Active Substance: LORATADINE
     Indication: RHINORRHOEA
     Dosage: 10 MG, QD
     Route: 048
     Dates: start: 20190820, end: 20190822
  6. LORATADINE. [Suspect]
     Active Substance: LORATADINE
     Indication: OCULAR HYPERAEMIA
  7. LORATADINE. [Suspect]
     Active Substance: LORATADINE
     Indication: EYE OEDEMA

REACTIONS (3)
  - Therapeutic product effect incomplete [Unknown]
  - Inappropriate schedule of product administration [Recovered/Resolved]
  - Off label use [Recovered/Resolved]

NARRATIVE: CASE EVENT DATE: 20190820
